FAERS Safety Report 6236625-0 (Version None)
Quarter: 2009Q2

REPORT INFORMATION
  Report Type: 
  Country: None (occurrence: None)
  Receive Date: 20090619
  Receipt Date: 20080804
  Transmission Date: 20091009
  Serious: No
  Sender: FDA-Public Use
  Company Number: US-ASTRAZENECA-2008UW15817

PATIENT
  Sex: Female

DRUGS (2)
  1. ATACAND [Suspect]
     Route: 048
     Dates: start: 20080704
  2. ATACAND [Suspect]
     Route: 048
     Dates: start: 20080704

REACTIONS (2)
  - BLOOD PRESSURE INCREASED [None]
  - COUGH [None]
